FAERS Safety Report 24716319 (Version 1)
Quarter: 2024Q4

REPORT INFORMATION
  Report Type: Report from Study
  Country: US (occurrence: US)
  Receive Date: 20241210
  Receipt Date: 20241210
  Transmission Date: 20250114
  Serious: No
  Sender: STALLERGENES
  Company Number: US-STALCOR-2024-AER-02576

PATIENT
  Age: 14 Year
  Sex: Male

DRUGS (2)
  1. PALFORZIA [Suspect]
     Active Substance: PEANUT
     Indication: Product used for unknown indication
     Dosage: CURRENT DOSE OF PALFORZIA
     Route: 048
     Dates: start: 20241024
  2. PALFORZIA [Suspect]
     Active Substance: PEANUT
     Dosage: REACTIVE DOSE OF 3MG, ADMINISTERED PRIOR TO EVENT ONSET
     Route: 048
     Dates: start: 20241105

REACTIONS (3)
  - Dyspnoea [Recovering/Resolving]
  - Nausea [Recovering/Resolving]
  - Vomiting [Recovering/Resolving]

NARRATIVE: CASE EVENT DATE: 20241105
